FAERS Safety Report 20598828 (Version 1)
Quarter: 2022Q1

REPORT INFORMATION
  Report Type: Other
  Country: US (occurrence: US)
  Receive Date: 20220315
  Receipt Date: 20220315
  Transmission Date: 20220423
  Serious: Yes (Hospitalization)
  Sender: FDA-Public Use
  Company Number: US-Genus_Lifesciences-USA-POI0580202200148

PATIENT
  Age: 70 Year
  Sex: Male

DRUGS (1)
  1. GOPRELTO [Suspect]
     Active Substance: COCAINE HYDROCHLORIDE
     Indication: Product used for unknown indication
     Dosage: UNKNOWN
     Route: 045
     Dates: end: 2021

REACTIONS (1)
  - Arteriospasm coronary [Recovered/Resolved with Sequelae]

NARRATIVE: CASE EVENT DATE: 20210101
